FAERS Safety Report 7824980-7 (Version None)
Quarter: 2011Q4

REPORT INFORMATION
  Report Type: 
  Country: None (occurrence: None)
  Receive Date: 20111019
  Receipt Date: 20111017
  Transmission Date: 20120403
  Serious: Yes (Disabling)
  Sender: FDA-Public Use
  Company Number: DE-MERCK-1110DEU00028

PATIENT
  Age: 63 Year
  Sex: Female
  Weight: 62 kg

DRUGS (2)
  1. MAXALT [Suspect]
     Indication: MIGRAINE
     Route: 048
     Dates: start: 20010101
  2. METOPROLOL [Concomitant]
     Indication: MIGRAINE
     Route: 065

REACTIONS (5)
  - CHEST PAIN [None]
  - GLAUCOMA [None]
  - APHASIA [None]
  - THIRST [None]
  - POLLAKIURIA [None]
